FAERS Safety Report 7234952 (Version 8)
Quarter: 2015Q1

REPORT INFORMATION
  Report Type: Spontaneous
  Country: US (occurrence: US)
  Receive Date: 20091231
  Receipt Date: 20150227
  Transmission Date: 20150721
  Serious: Yes (Hospitalization, Other)
  Sender: FDA-Public Use
  Company Number: US-ASTRAZENECA-2009SE33510

PATIENT
  Age: 64 Year
  Sex: Male
  Weight: 113.4 kg

DRUGS (16)
  1. SYMBICORT [Suspect]
     Active Substance: BUDESONIDE\FORMOTEROL FUMARATE DIHYDRATE
     Route: 055
  2. ASPIRIN. [Concomitant]
     Active Substance: ASPIRIN
  3. SEROQUEL [Suspect]
     Active Substance: QUETIAPINE FUMARATE
     Indication: SLEEP DISORDER
     Route: 048
     Dates: start: 1995
  4. NORVASC [Concomitant]
     Active Substance: AMLODIPINE BESYLATE
  5. LITHIUM [Concomitant]
     Active Substance: LITHIUM CARBONATE
     Indication: BIPOLAR I DISORDER
     Route: 048
     Dates: start: 1995
  6. SEROQUEL [Suspect]
     Active Substance: QUETIAPINE FUMARATE
     Indication: BIPOLAR I DISORDER
     Route: 048
  7. INHALERS [Concomitant]
     Active Substance: UNSPECIFIED INGREDIENT
  8. SEROQUEL [Suspect]
     Active Substance: QUETIAPINE FUMARATE
     Indication: BIPOLAR I DISORDER
     Route: 048
  9. SPIRIVA [Concomitant]
     Active Substance: TIOTROPIUM BROMIDE MONOHYDRATE
  10. SENOKOT [Concomitant]
     Active Substance: SENNOSIDES
  11. NEURONTIN [Concomitant]
     Active Substance: GABAPENTIN
     Route: 048
     Dates: start: 2012
  12. SEROQUEL [Suspect]
     Active Substance: QUETIAPINE FUMARATE
     Indication: SLEEP DISORDER
     Route: 048
  13. SEROQUEL [Suspect]
     Active Substance: QUETIAPINE FUMARATE
     Indication: BIPOLAR I DISORDER
     Route: 048
     Dates: start: 1995
  14. SEROQUEL [Suspect]
     Active Substance: QUETIAPINE FUMARATE
     Indication: SLEEP DISORDER
     Route: 048
  15. LITHIUM [Concomitant]
     Active Substance: LITHIUM CARBONATE
     Indication: BIPOLAR I DISORDER
     Dosage: 1200 MG EVERY DAY IN DIVIDED DOSE
  16. MICARDIS [Concomitant]
     Active Substance: TELMISARTAN
     Indication: BLOOD PRESSURE ABNORMAL
     Route: 048
     Dates: start: 2012

REACTIONS (16)
  - Emphysema [Unknown]
  - Somnolence [Unknown]
  - Delusion [Unknown]
  - Malaise [Unknown]
  - Myocardial infarction [Unknown]
  - Fall [Unknown]
  - Dry mouth [Recovered/Resolved]
  - Activities of daily living impaired [Unknown]
  - Nerve compression [Unknown]
  - Wrong patient received medication [Unknown]
  - Dyspnoea [Unknown]
  - Amnesia [Unknown]
  - Hypersomnia [Unknown]
  - Adverse event [Unknown]
  - Mania [Unknown]
  - Hypertension [Unknown]

NARRATIVE: CASE EVENT DATE: 2009
